FAERS Safety Report 12058023 (Version 1)
Quarter: 2016Q1

REPORT INFORMATION
  Report Type: Report from Study
  Country: US (occurrence: US)
  Receive Date: 20160209
  Receipt Date: 20160209
  Transmission Date: 20160526
  Serious: No
  Sender: FDA-Public Use
  Company Number: US-ABBVIE-15P-163-1494387-00

PATIENT
  Sex: Female

DRUGS (1)
  1. HUMIRA [Suspect]
     Active Substance: ADALIMUMAB
     Indication: CROHN^S DISEASE
     Route: 058
     Dates: start: 201503

REACTIONS (12)
  - Dysuria [Unknown]
  - Flatulence [Unknown]
  - Dehydration [Unknown]
  - Diarrhoea [Unknown]
  - Micturition urgency [Unknown]
  - Abdominal discomfort [Unknown]
  - Muscle spasms [Unknown]
  - Sluggishness [Unknown]
  - Discomfort [Unknown]
  - Fatigue [Unknown]
  - Abdominal pain upper [Unknown]
  - Headache [Unknown]

NARRATIVE: CASE EVENT DATE: 2015
